FAERS Safety Report 14145462 (Version 1)
Quarter: 2017Q4

REPORT INFORMATION
  Report Type: Spontaneous
  Country: US (occurrence: US)
  Receive Date: 20171030
  Receipt Date: 20171030
  Transmission Date: 20180321
  Serious: Yes (Disabling)
  Sender: FDA-Public Use
  Company Number: None

PATIENT
  Age: 68 Year
  Sex: Male
  Weight: 87.3 kg

DRUGS (12)
  1. DYRENIUM [Concomitant]
     Active Substance: TRIAMTERENE
  2. ATROVASTATIN [Concomitant]
     Active Substance: ATORVASTATIN CALCIUM
  3. OMNEPRAZOLE [Concomitant]
  4. FISH OIL [Concomitant]
     Active Substance: FISH OIL
  5. VALSARTAN. [Concomitant]
     Active Substance: VALSARTAN
  6. NIFEDIPINE. [Suspect]
     Active Substance: NIFEDIPINE
     Indication: HYPERTENSION
     Route: 048
     Dates: start: 20161004, end: 20161221
  7. AZAELASTINE NASAL SPRAY [Concomitant]
  8. BABY ASPIRIN [Concomitant]
     Active Substance: ASPIRIN
  9. AMLODIPINE [Concomitant]
     Active Substance: AMLODIPINE BESYLATE
  10. LEVOTHYROXIN [Concomitant]
     Active Substance: LEVOTHYROXINE
  11. RANITIDINE. [Concomitant]
     Active Substance: RANITIDINE
  12. VITAMIN D [Concomitant]
     Active Substance: CHOLECALCIFEROL

REACTIONS (2)
  - Arthritis [None]
  - Pain in extremity [None]

NARRATIVE: CASE EVENT DATE: 20161004
